FAERS Safety Report 4269513-X (Version None)
Quarter: 2004Q1

REPORT INFORMATION
  Report Type: 
  Country: None (occurrence: None)
  Receive Date: 20040109
  Receipt Date: 20031224
  Transmission Date: 20041129
  Serious: Yes (Other)
  Sender: FDA-Public Use
  Company Number: CH-SHR-03-019097

PATIENT
  Age: 42 Year
  Sex: Female
  Weight: 64 kg

DRUGS (1)
  1. BETAFERON(INTERFERON BETA-1B) INJECTION, 250UG [Suspect]
     Indication: MULTIPLE SCLEROSIS
     Dosage: 8 MIU, 2X/WEEK, SUBCUTANEOUS
     Route: 058

REACTIONS (2)
  - DENTAL CARIES [None]
  - INFECTION IN AN IMMUNOCOMPROMISED HOST [None]
